FAERS Safety Report 25667412 (Version 1)
Quarter: 2025Q3

REPORT INFORMATION
  Report Type: Other
  Country: US (occurrence: US)
  Receive Date: 20250811
  Receipt Date: 20250811
  Transmission Date: 20251020
  Serious: Yes (Other)
  Sender: HLS THERAPEUTICS
  Company Number: US-HLS-202500287

PATIENT
  Age: 49 Year
  Sex: Male

DRUGS (1)
  1. CLOZAPINE [Suspect]
     Active Substance: CLOZAPINE
     Indication: Product used for unknown indication
     Route: 065

REACTIONS (5)
  - Diarrhoea [Recovered/Resolved]
  - Drug hypersensitivity [Recovered/Resolved]
  - Pyrexia [Recovered/Resolved]
  - Septic shock [Unknown]
  - Rash erythematous [Recovering/Resolving]
